FAERS Safety Report 14513274 (Version 1)
Quarter: 2018Q1

REPORT INFORMATION
  Report Type: Spontaneous
  Country: US (occurrence: US)
  Receive Date: 20180208
  Receipt Date: 20180208
  Transmission Date: 20180509
  Serious: Yes (Hospitalization)
  Sender: FDA-Public Use
  Company Number: None

PATIENT
  Age: 67 Year
  Sex: Female

DRUGS (1)
  1. STELARA [Suspect]
     Active Substance: USTEKINUMAB
     Indication: PSORIASIS
     Dosage: ?          OTHER FREQUENCY:WEEK 0 + WEEK 4;?
     Route: 058
     Dates: start: 20171109

REACTIONS (2)
  - Lung infection [None]
  - Condition aggravated [None]

NARRATIVE: CASE EVENT DATE: 20180208
